FAERS Safety Report 12376022 (Version 13)
Quarter: 2017Q3

REPORT INFORMATION
  Report Type: Report from Study
  Country: CA (occurrence: CA)
  Receive Date: 20160517
  Receipt Date: 20170908
  Transmission Date: 20171127
  Serious: Yes (Other)
  Sender: FDA-Public Use
  Company Number: CA-SA-2016SA046918

PATIENT
  Age: 33 Year
  Sex: Female
  Weight: 54.43 kg

DRUGS (12)
  1. CIPRALEX [Concomitant]
     Active Substance: ESCITALOPRAM OXALATE
  2. VITAMIN C [Concomitant]
     Active Substance: ASCORBIC ACID
  3. TYLENOL [Concomitant]
     Active Substance: ACETAMINOPHEN
     Indication: PREMEDICATION
     Route: 048
     Dates: start: 20160229
  4. MINERALS NOS/FOLIC ACID/VITAMINS NOS/IRON [Concomitant]
  5. METHYLPREDNISOLONE. [Suspect]
     Active Substance: METHYLPREDNISOLONE
     Indication: PREMEDICATION
     Route: 042
     Dates: start: 20160301, end: 20160301
  6. CIMETIDINE [Concomitant]
     Active Substance: CIMETIDINE
     Indication: PREMEDICATION
     Route: 048
     Dates: start: 20160229, end: 20160304
  7. LEMTRADA [Suspect]
     Active Substance: ALEMTUZUMAB
     Indication: RELAPSING-REMITTING MULTIPLE SCLEROSIS
     Route: 041
     Dates: start: 20160229, end: 20160304
  8. GRAVOL [Concomitant]
     Active Substance: DIMENHYDRINATE
     Indication: PREMEDICATION
     Dosage: PO/IV
     Dates: start: 20160229
  9. ACYCLOVIR. [Concomitant]
     Active Substance: ACYCLOVIR
     Indication: PREMEDICATION
     Route: 048
     Dates: start: 20160229, end: 20160329
  10. VITAMIN D [Concomitant]
     Active Substance: CHOLECALCIFEROL
  11. METHYLPREDNISOLONE. [Concomitant]
     Active Substance: METHYLPREDNISOLONE
     Indication: PREMEDICATION
     Route: 042
     Dates: start: 20160229, end: 20160304
  12. BENADRYL [Concomitant]
     Active Substance: DIPHENHYDRAMINE HYDROCHLORIDE
     Indication: PREMEDICATION
     Dosage: 25-50MG
     Route: 048
     Dates: start: 20160229, end: 20160304

REACTIONS (45)
  - Paraesthesia [Recovered/Resolved]
  - Feeling hot [Recovered/Resolved]
  - Decreased appetite [Recovered/Resolved]
  - Urine odour abnormal [Recovered/Resolved]
  - Chest discomfort [Recovered/Resolved]
  - Headache [Recovered/Resolved]
  - Rash [Recovered/Resolved]
  - Multiple sclerosis relapse [Recovered/Resolved]
  - Haemoglobin decreased [Recovered/Resolved]
  - Blood creatinine decreased [Recovered/Resolved]
  - Urine ketone body present [Recovered/Resolved]
  - Crying [Recovering/Resolving]
  - Blood urine present [Recovered/Resolved]
  - Body temperature increased [Recovered/Resolved]
  - Rash erythematous [Recovered/Resolved]
  - Monocyte count decreased [Recovered/Resolved]
  - Red blood cell count decreased [Recovered/Resolved]
  - Anxiety [Recovering/Resolving]
  - Maternal exposure before pregnancy [Unknown]
  - Pollakiuria [Unknown]
  - Epistaxis [Recovered/Resolved]
  - Haematocrit decreased [Recovered/Resolved]
  - Urine leukocyte esterase positive [Not Recovered/Not Resolved]
  - Flushing [Recovered/Resolved]
  - Neutrophil count decreased [Not Recovered/Not Resolved]
  - Dyspnoea [Recovered/Resolved]
  - Hypoaesthesia [Recovered/Resolved]
  - Chromaturia [Recovered/Resolved]
  - Culture urine positive [Unknown]
  - pH urine increased [Recovered/Resolved]
  - Back pain [Recovered/Resolved]
  - Polydipsia [Not Recovered/Not Resolved]
  - Rash papular [Recovered/Resolved]
  - Lymphocyte count decreased [Not Recovered/Not Resolved]
  - Insomnia [Recovering/Resolving]
  - Feeling hot [Recovered/Resolved]
  - Neutropenia [Not Recovered/Not Resolved]
  - Red blood cell abnormality [Recovered/Resolved]
  - Urine abnormality [Recovered/Resolved]
  - Rash pruritic [Recovered/Resolved]
  - Nausea [Recovered/Resolved]
  - Flushing [Recovered/Resolved]
  - Erythema [Recovered/Resolved]
  - Chills [Recovered/Resolved]
  - White blood cell count decreased [Not Recovered/Not Resolved]

NARRATIVE: CASE EVENT DATE: 2016
